FAERS Safety Report 5488349-5 (Version None)
Quarter: 2007Q4

REPORT INFORMATION
  Report Type: 
  Country: None (occurrence: None)
  Receive Date: 20071017
  Receipt Date: 20071016
  Transmission Date: 20080405
  Serious: Yes (Other)
  Sender: FDA-Public Use
  Company Number: A0688312A

PATIENT
  Age: 37 Year
  Sex: Female

DRUGS (2)
  1. LAMOTRIGINE [Suspect]
     Indication: BIPOLAR DISORDER
     Dosage: 200MG PER DAY
  2. ZOLOFT [Concomitant]
     Dosage: 100MG PER DAY

REACTIONS (1)
  - ABORTION SPONTANEOUS [None]
